FAERS Safety Report 9657918 (Version 2)
Quarter: 2013Q4

REPORT INFORMATION
  Report Type: Spontaneous
  Country: US (occurrence: CA)
  Receive Date: 20131030
  Receipt Date: 20131107
  Transmission Date: 20140711
  Serious: Yes (Death)
  Sender: FDA-Public Use
  Company Number: CA-FRI-1000050615

PATIENT
  Age: 58 Year
  Sex: Female

DRUGS (8)
  1. ROFLUMILAST [Suspect]
     Indication: CHRONIC OBSTRUCTIVE PULMONARY DISEASE
     Dosage: 500 MCG
     Route: 048
     Dates: start: 201208, end: 201310
  2. METFORMIN [Concomitant]
     Dosage: 500 MG
  3. GLYBURIDE [Concomitant]
     Dosage: 2.5 MG
  4. LASIX [Concomitant]
     Dosage: 40 MG
  5. ATROVENT [Concomitant]
  6. VENTOLIN [Concomitant]
  7. ADVAIR [Concomitant]
     Dosage: 250 MG
  8. RAMIPRIL [Concomitant]
     Dosage: 10 MG

REACTIONS (1)
  - Sudden death [Fatal]
